FAERS Safety Report 13522348 (Version 1)
Quarter: 2017Q2

REPORT INFORMATION
  Report Type: Spontaneous
  Country: US (occurrence: US)
  Receive Date: 20170508
  Receipt Date: 20170508
  Transmission Date: 20170830
  Serious: Yes (Other)
  Sender: FDA-Public Use
  Company Number: None

PATIENT
  Age: 7 Year
  Sex: Male

DRUGS (3)
  1. CLARITIN [Concomitant]
     Active Substance: LORATADINE
  2. FLONASE [Concomitant]
     Active Substance: FLUTICASONE PROPIONATE
  3. EPIPEN JR [Suspect]
     Active Substance: EPINEPHRINE
     Route: 058

REACTIONS (4)
  - Injection site swelling [None]
  - Injection site pain [None]
  - Wrist fracture [None]
  - Accidental exposure to product by child [None]
